FAERS Safety Report 25348733 (Version 1)
Quarter: 2025Q2

REPORT INFORMATION
  Report Type: Spontaneous
  Country: US (occurrence: US)
  Receive Date: 20250522
  Receipt Date: 20250522
  Transmission Date: 20250717
  Serious: No
  Sender: FRESENIUS KABI
  Company Number: US-FreseniusKabi-FK202507254

PATIENT

DRUGS (2)
  1. XYLOCAINE WITH EPINEPHRINE [Suspect]
     Active Substance: EPINEPHRINE BITARTRATE\LIDOCAINE HYDROCHLORIDE
     Indication: Local anaesthesia
  2. XYLOCAINE WITH EPINEPHRINE [Suspect]
     Active Substance: EPINEPHRINE BITARTRATE\LIDOCAINE HYDROCHLORIDE

REACTIONS (1)
  - Therapeutic product effect decreased [Unknown]
